FAERS Safety Report 14686874 (Version 3)
Quarter: 2018Q2

REPORT INFORMATION
  Report Type: Spontaneous
  Country: US (occurrence: US)
  Receive Date: 20180327
  Receipt Date: 20180428
  Transmission Date: 20180711
  Serious: Yes (Death, Hospitalization)
  Sender: FDA-Public Use
  Company Number: US-VIFOR (INTERNATIONAL) INC.-VIT-2018-02885

PATIENT
  Age: 24 Year
  Sex: Male

DRUGS (16)
  1. LACTULOSE. [Concomitant]
     Active Substance: LACTULOSE
  2. SENSIPAR [Concomitant]
     Active Substance: CINACALCET HYDROCHLORIDE
  3. LACTOBACILLUS ACIDOPHILUS\LACTOBACILLUS BULGARICUS [Concomitant]
     Active Substance: LACTOBACILLUS ACIDOPHILUS\LACTOBACILLUS DELBRUECKII SUBSP. BULGARICUS
  4. MIDODRINE HYDROCHLORIDE. [Concomitant]
     Active Substance: MIDODRINE HYDROCHLORIDE
  5. ATOVAQUONE. [Concomitant]
     Active Substance: ATOVAQUONE
  6. BUPROPION HYDROCHLORIDE. [Concomitant]
     Active Substance: BUPROPION HYDROCHLORIDE
  7. HUMALOG [Concomitant]
     Active Substance: INSULIN LISPRO
  8. VELTASSA [Suspect]
     Active Substance: PATIROMER
     Indication: TYPE 2 DIABETES MELLITUS
     Route: 048
     Dates: start: 20180306
  9. VELTASSA [Suspect]
     Active Substance: PATIROMER
     Dates: start: 201801
  10. RENVELA [Concomitant]
     Active Substance: SEVELAMER CARBONATE
  11. LEVOTHYROXINE SODIUM. [Concomitant]
     Active Substance: LEVOTHYROXINE SODIUM
  12. LORATADINE. [Concomitant]
     Active Substance: LORATADINE
  13. LANTUS SOLOSTAR [Concomitant]
     Active Substance: INSULIN GLARGINE
  14. PANTOPRAZOLE SODIUM SESQUIHYDRATE [Concomitant]
     Active Substance: PANTOPRAZOLE SODIUM
  15. PREDNISONE. [Concomitant]
     Active Substance: PREDNISONE
  16. RENAL-VITE [Concomitant]

REACTIONS (3)
  - Off label use [Unknown]
  - Death [Fatal]
  - Pneumonia [Not Recovered/Not Resolved]

NARRATIVE: CASE EVENT DATE: 201803
